FAERS Safety Report 20769257 (Version 7)
Quarter: 2022Q4

REPORT INFORMATION
  Report Type: Report from Study
  Country: IT (occurrence: IT)
  Receive Date: 20220429
  Receipt Date: 20221014
  Transmission Date: 20230113
  Serious: Yes (Life-Threatening)
  Sender: FDA-Public Use
  Company Number: IT-DSRSG-DS8201AU306_39016004_000001

PATIENT
  Age: 7 Decade
  Sex: Male
  Weight: 76 kg

DRUGS (22)
  1. FAM-TRASTUZUMAB DERUXTECAN-NXKI [Suspect]
     Active Substance: FAM-TRASTUZUMAB DERUXTECAN-NXKI
     Indication: HER2 positive gastric cancer
     Dosage: 486.4 MG
     Route: 042
     Dates: start: 20220113, end: 20220113
  2. FAM-TRASTUZUMAB DERUXTECAN-NXKI [Suspect]
     Active Substance: FAM-TRASTUZUMAB DERUXTECAN-NXKI
     Dosage: 410.4 MG
     Route: 042
     Dates: start: 20220203, end: 20220203
  3. FAM-TRASTUZUMAB DERUXTECAN-NXKI [Suspect]
     Active Substance: FAM-TRASTUZUMAB DERUXTECAN-NXKI
     Dosage: 410.4 MG
     Route: 042
     Dates: start: 20220224, end: 20220224
  4. FAM-TRASTUZUMAB DERUXTECAN-NXKI [Suspect]
     Active Substance: FAM-TRASTUZUMAB DERUXTECAN-NXKI
     Dosage: 410.4 MG
     Route: 042
     Dates: start: 20220317, end: 20220317
  5. FAM-TRASTUZUMAB DERUXTECAN-NXKI [Suspect]
     Active Substance: FAM-TRASTUZUMAB DERUXTECAN-NXKI
     Dosage: 410.4 MG
     Route: 042
     Dates: start: 20220407, end: 20220407
  6. PANTOPRAZOLE [Concomitant]
     Active Substance: PANTOPRAZOLE
     Dosage: 20 OTHER
     Route: 048
     Dates: start: 20070101
  7. NEBIVOLOL [Concomitant]
     Active Substance: NEBIVOLOL
     Indication: Hypertension
     Dosage: 2.5 OTHER
     Route: 048
     Dates: start: 20150101
  8. CANRENOATE POTASSIUM [Concomitant]
     Active Substance: CANRENOATE POTASSIUM
     Indication: Hypertension
     Dosage: 50 OTHER
     Route: 048
     Dates: start: 20150101
  9. PIPERACILLIN AND TAZOBACTAM [Concomitant]
     Active Substance: PIPERACILLIN SODIUM\TAZOBACTAM SODIUM
     Dosage: 4 G/0,5 G GRAM
     Route: 042
     Dates: start: 20220422, end: 20220429
  10. AZITHROMYCIN [Concomitant]
     Active Substance: AZITHROMYCIN
     Dosage: 500 MILLIGRAM
     Route: 048
     Dates: start: 20220422, end: 20220424
  11. SILODOSIN [Concomitant]
     Active Substance: SILODOSIN
     Indication: Benign prostatic hyperplasia
     Dosage: 8 OTHER
     Route: 048
     Dates: start: 20070301
  12. FLUCONAZOLE [Concomitant]
     Active Substance: FLUCONAZOLE
     Dosage: 200 MILLIGRAM
     Route: 048
     Dates: start: 20220422, end: 20220429
  13. FILGRASTIM [Concomitant]
     Active Substance: FILGRASTIM
     Dosage: 30 OTHER
     Route: 058
     Dates: start: 20220422, end: 20220424
  14. PERIDON [DOMPERIDONE] [Concomitant]
     Dosage: 10 MILLIGRAM
     Route: 048
     Dates: start: 20220224
  15. PERIDON [DOMPERIDONE] [Concomitant]
     Dosage: 10 MILLIGRAM
     Route: 048
     Dates: start: 20220305
  16. PALONOSETRON [Concomitant]
     Active Substance: PALONOSETRON
     Dosage: 250 MICROGRAM
     Route: 042
     Dates: start: 20220113
  17. DEURSIL [Concomitant]
     Active Substance: URSODIOL
     Dosage: 300 OTHER
     Route: 048
     Dates: start: 20070101
  18. POTASSIUM CHLORIDE [Concomitant]
     Active Substance: POTASSIUM CHLORIDE
     Dosage: 12.5 OTHER
     Route: 048
     Dates: start: 20220317, end: 20220407
  19. VALACYCLOVIR HYDROCHLORIDE [Concomitant]
     Active Substance: VALACYCLOVIR HYDROCHLORIDE
     Indication: Myelodysplastic syndrome
     Dosage: 50 MICROGRAM
     Route: 048
  20. PRAVASTATIN [Concomitant]
     Active Substance: PRAVASTATIN
     Indication: Hypercholesterolaemia
     Dosage: 20 OTHER
     Route: 048
     Dates: start: 20150101
  21. LORAZEPAM [Concomitant]
     Active Substance: LORAZEPAM
     Dosage: 1 OTHER
     Route: 048
  22. BARNIDIPINE HYDROCHLORIDE [Concomitant]
     Active Substance: BARNIDIPINE HYDROCHLORIDE
     Indication: Hypertension
     Dosage: 20 OTHER
     Route: 048
     Dates: start: 20150101

REACTIONS (1)
  - Pancytopenia [Recovered/Resolved]

NARRATIVE: CASE EVENT DATE: 20220422
